FAERS Safety Report 12654380 (Version 1)
Quarter: 2016Q3

REPORT INFORMATION
  Report Type: Spontaneous
  Country: US (occurrence: None)
  Receive Date: 20160815
  Receipt Date: 20160815
  Transmission Date: 20161109
  Serious: Yes (Hospitalization, Disabling)
  Sender: FDA-Public Use
  Company Number: None

PATIENT
  Age: 52 Year
  Sex: Male
  Weight: 83 kg

DRUGS (3)
  1. PROZAC [Concomitant]
     Active Substance: FLUOXETINE HYDROCHLORIDE
  2. BENZODIAZEPINES (ALPRAZOLAM) [Concomitant]
  3. RISPERIDONE. [Suspect]
     Active Substance: RISPERIDONE
     Indication: AGGRESSION
     Route: 048

REACTIONS (6)
  - Swelling [None]
  - Suicide attempt [None]
  - Laceration [None]
  - Suicidal ideation [None]
  - Asthenia [None]
  - Intentional self-injury [None]

NARRATIVE: CASE EVENT DATE: 20160810
